FAERS Safety Report 12408629 (Version 1)
Quarter: 2016Q2

REPORT INFORMATION
  Report Type: Spontaneous
  Country: US (occurrence: US)
  Receive Date: 20160526
  Receipt Date: 20160526
  Transmission Date: 20160815
  Serious: No
  Sender: FDA-Public Use
  Company Number: US-MDT-ADR-2016-00952

PATIENT
  Age: 16 Year
  Sex: Male

DRUGS (1)
  1. BACLOFEN. [Suspect]
     Active Substance: BACLOFEN
     Route: 037
     Dates: end: 20160518

REACTIONS (1)
  - Intercepted drug administration error [Recovered/Resolved]

NARRATIVE: CASE EVENT DATE: 20160518
